FAERS Safety Report 6417928-3 (Version None)
Quarter: 2009Q4

REPORT INFORMATION
  Report Type: 
  Country: None (occurrence: None)
  Receive Date: 20091028
  Receipt Date: 20091022
  Transmission Date: 20100525
  Serious: Yes (Hospitalization)
  Sender: FDA-Public Use
  Company Number: B0600019A

PATIENT
  Age: 86 Year
  Sex: Female
  Weight: 45 kg

DRUGS (8)
  1. MELPHALAN [Suspect]
     Indication: MULTIPLE MYELOMA
     Dosage: .1MGK PER DAY
     Dates: start: 20090910
  2. PREDNISONE TAB [Suspect]
     Indication: MULTIPLE MYELOMA
     Dosage: 2MGK PER DAY
     Dates: start: 20090910
  3. THALIDOMIDE [Suspect]
     Indication: MULTIPLE MYELOMA
     Dosage: 100MG PER DAY
     Dates: start: 20090910
  4. KARDEGIC [Concomitant]
     Dosage: 160MG PER DAY
     Route: 048
  5. CARDEGIC [Concomitant]
     Indication: VENOUS THROMBOSIS
     Dosage: 1.25MG PER DAY
     Route: 048
  6. DURAGESIC-100 [Concomitant]
     Indication: BONE PAIN
     Dates: start: 20090822
  7. DOLIPRANE [Concomitant]
     Indication: BONE PAIN
     Dosage: 4G FOUR TIMES PER DAY
     Route: 048
     Dates: start: 20090822
  8. BLOOD CELLS [Concomitant]
     Indication: DRUG USE FOR UNKNOWN INDICATION
     Route: 042

REACTIONS (2)
  - FATIGUE [None]
  - INFECTION [None]
